FAERS Safety Report 20087549 (Version 2)
Quarter: 2022Q1

REPORT INFORMATION
  Report Type: Report from Study
  Country: BR (occurrence: BR)
  Receive Date: 20211118
  Receipt Date: 20220328
  Transmission Date: 20220424
  Serious: Yes (Other)
  Sender: FDA-Public Use
  Company Number: BR-NOVARTISPH-NVSC2021BR260091

PATIENT
  Age: 68 Year
  Sex: Female

DRUGS (7)
  1. ANASTROZOLE [Suspect]
     Active Substance: ANASTROZOLE
     Indication: Product used for unknown indication
     Dosage: UNK
     Route: 065
     Dates: start: 201309
  2. FULVESTRANT [Suspect]
     Active Substance: FULVESTRANT
     Indication: Product used for unknown indication
     Dosage: UNK
     Route: 065
  3. TAMOXIFEN [Suspect]
     Active Substance: TAMOXIFEN
     Indication: Product used for unknown indication
     Dosage: UNK
     Route: 065
     Dates: start: 201008
  4. EVEROLIMUS [Suspect]
     Active Substance: EVEROLIMUS
     Indication: Product used for unknown indication
     Dosage: UNK
     Route: 065
     Dates: start: 201808
  5. DENOSUMAB [Concomitant]
     Active Substance: DENOSUMAB
     Indication: Product used for unknown indication
     Dosage: UNK
     Route: 065
  6. DENOSUMAB [Concomitant]
     Active Substance: DENOSUMAB
     Dosage: UNK (EVERY 28 DAYS)
     Route: 065
     Dates: start: 201808
  7. EXEMESTANE [Concomitant]
     Active Substance: EXEMESTANE
     Indication: Product used for unknown indication
     Dosage: UNK
     Route: 065
     Dates: start: 201808

REACTIONS (21)
  - Metastatic neoplasm [Unknown]
  - Metastasis [Unknown]
  - Metastases to bone [Unknown]
  - Thoracic vertebral fracture [Unknown]
  - Lymph node palpable [Unknown]
  - Benign lymph node neoplasm [Unknown]
  - Total lung capacity increased [Unknown]
  - Scapula fracture [Unknown]
  - Elastofibroma [Unknown]
  - Osteosclerosis [Unknown]
  - Pulmonary mass [Unknown]
  - Bone lesion [Unknown]
  - Tumour marker increased [Unknown]
  - Stomatitis [Unknown]
  - Fatigue [Unknown]
  - Hyperglycaemia [Unknown]
  - Dyslipidaemia [Unknown]
  - Bone disorder [Unknown]
  - Bone pain [Unknown]
  - Endocrine disorder [Unknown]
  - Hypertriglyceridaemia [Unknown]

NARRATIVE: CASE EVENT DATE: 20130401
